FAERS Safety Report 7651349-0 (Version None)
Quarter: 2011Q3

REPORT INFORMATION
  Report Type: 
  Country: None (occurrence: None)
  Receive Date: 20110802
  Receipt Date: 20110719
  Transmission Date: 20111222
  Serious: Yes (Hospitalization)
  Sender: FDA-Public Use
  Company Number: PHHY2011AR64769

PATIENT
  Age: 79 Year
  Sex: Female

DRUGS (3)
  1. RASILEZ [Suspect]
     Dosage: 150 MG, UNK
  2. RASILEZ [Suspect]
     Dosage: 300 MG, UNK
  3. ATENOLOL [Concomitant]
     Dosage: 50 MG, UNK

REACTIONS (1)
  - ATRIOVENTRICULAR DISSOCIATION [None]
